FAERS Safety Report 15595768 (Version 2)
Quarter: 2018Q4

REPORT INFORMATION
  Report Type: Spontaneous
  Country: US (occurrence: US)
  Receive Date: 20181107
  Receipt Date: 20181119
  Transmission Date: 20190205
  Serious: Yes (Hospitalization, Other)
  Sender: FDA-Public Use
  Company Number: US-BAUSCH-BL-2018-030580

PATIENT
  Age: 17 Year
  Sex: Male

DRUGS (2)
  1. METRONIDAZOLE. [Suspect]
     Active Substance: METRONIDAZOLE
     Indication: DIARRHOEA
  2. METRONIDAZOLE. [Suspect]
     Active Substance: METRONIDAZOLE
     Indication: PROPHYLAXIS
     Dosage: LONG-TERM
     Route: 065

REACTIONS (3)
  - Cerebellar ataxia [Recovering/Resolving]
  - Mental status changes [Recovering/Resolving]
  - Neurotoxicity [Recovering/Resolving]
